FAERS Safety Report 10403524 (Version 1)
Quarter: 2014Q3

REPORT INFORMATION
  Report Type: Spontaneous
  Country: GB (occurrence: GB)
  Receive Date: 20140822
  Receipt Date: 20140822
  Transmission Date: 20150326
  Serious: Yes (Other)
  Sender: FDA-Public Use
  Company Number: GB-WATSON-2014-18117

PATIENT
  Age: 52 Year
  Sex: Male
  Weight: 89 kg

DRUGS (1)
  1. ROPINIROLE (UNKNOWN) [Suspect]
     Active Substance: ROPINIROLE
     Indication: PARKINSON^S DISEASE
     Dosage: CURRENTLY 10MG DAILY BUT HAS BEEN HIGHER THAN THIS AT 16MG
     Route: 048
     Dates: start: 2009

REACTIONS (5)
  - Pathological gambling [Not Recovered/Not Resolved]
  - Hypersexuality [Not Recovered/Not Resolved]
  - Depressed mood [Not Recovered/Not Resolved]
  - Paranoia [Not Recovered/Not Resolved]
  - Apathy [Not Recovered/Not Resolved]

NARRATIVE: CASE EVENT DATE: 2012
